FAERS Safety Report 11342398 (Version 1)
Quarter: 2015Q3

REPORT INFORMATION
  Report Type: Spontaneous
  Country: US (occurrence: US)
  Receive Date: 20150805
  Receipt Date: 20150805
  Transmission Date: 20151125
  Serious: No
  Sender: FDA-Public Use
  Company Number: US-BAUSCH-2014ST000096

PATIENT
  Age: 79 Year
  Sex: Male
  Weight: 81.18 kg

DRUGS (3)
  1. FLOMAX [Concomitant]
     Active Substance: TAMSULOSIN HYDROCHLORIDE
     Indication: PROSTATOMEGALY
  2. GLUMETZA [Suspect]
     Active Substance: METFORMIN HYDROCHLORIDE
     Indication: DIABETES MELLITUS
     Dosage: 1000 MG, EVERY DAY
     Route: 048
     Dates: start: 2012
  3. PROSCAR [Concomitant]
     Active Substance: FINASTERIDE
     Indication: PROSTATOMEGALY

REACTIONS (1)
  - Pollakiuria [Not Recovered/Not Resolved]

NARRATIVE: CASE EVENT DATE: 20140713
